FAERS Safety Report 20356430 (Version 1)
Quarter: 2022Q1

REPORT INFORMATION
  Report Type: Report from Study
  Country: CA (occurrence: CA)
  Receive Date: 20220120
  Receipt Date: 20220120
  Transmission Date: 20220423
  Serious: Yes (Other)
  Sender: FDA-Public Use
  Company Number: CA-PFIZER INC-202200026178

PATIENT
  Age: 54 Year
  Sex: Male
  Weight: 118 kg

DRUGS (7)
  1. INLYTA [Suspect]
     Active Substance: AXITINIB
     Dosage: UNK
     Route: 048
  2. INLYTA [Suspect]
     Active Substance: AXITINIB
     Dosage: 3 MG, 2X/DAY
     Route: 048
  3. PEMBROLIZUMAB [Suspect]
     Active Substance: PEMBROLIZUMAB
     Indication: Renal cell carcinoma
     Dosage: 200 MG, EVERY 3 WEEKS
     Route: 042
  4. PEMBROLIZUMAB [Suspect]
     Active Substance: PEMBROLIZUMAB
     Dosage: 200 MG, EVERY 3 WEEKS
     Route: 042
  5. PEMBROLIZUMAB [Suspect]
     Active Substance: PEMBROLIZUMAB
     Dosage: 200 MG, EVERY 3 WEEKS
     Route: 042
  6. PEMBROLIZUMAB [Suspect]
     Active Substance: PEMBROLIZUMAB
     Dosage: 200 MG, EVERY 3 WEEKS
     Route: 042
  7. PEMBROLIZUMAB [Suspect]
     Active Substance: PEMBROLIZUMAB
     Indication: Renal cell carcinoma
     Dosage: 200 MG, EVERY 3 WEEKS
     Route: 042

REACTIONS (22)
  - Blood pressure abnormal [Recovered/Resolved]
  - Back pain [Recovered/Resolved]
  - Body temperature increased [Recovered/Resolved]
  - Dry mouth [Recovered/Resolved]
  - Eating disorder [Recovered/Resolved]
  - Heart rate increased [Recovered/Resolved]
  - Oral pain [Recovered/Resolved]
  - Skin fissures [Recovered/Resolved]
  - Taste disorder [Recovered/Resolved]
  - Weight fluctuation [Recovered/Resolved]
  - Arthralgia [Recovered/Resolved]
  - Erythema [Recovered/Resolved]
  - Glossodynia [Recovered/Resolved]
  - Hypertension [Recovered/Resolved]
  - Palmar-plantar erythrodysaesthesia syndrome [Recovered/Resolved]
  - Weight decreased [Recovered/Resolved]
  - Lung disorder [Recovered/Resolved]
  - Pain [Recovered/Resolved]
  - Poor venous access [Recovered/Resolved]
  - Neoplasm progression [Recovered/Resolved]
  - Circumstance or information capable of leading to medication error [Recovered/Resolved]
  - Inappropriate schedule of product administration [Recovered/Resolved]
